FAERS Safety Report 6024022-2 (Version None)
Quarter: 2008Q4

REPORT INFORMATION
  Report Type: 
  Country: None (occurrence: None)
  Receive Date: 20081222
  Receipt Date: 20081001
  Transmission Date: 20090506
  Serious: No
  Sender: FDA-Public Use
  Company Number: ALL1-2008-02843

PATIENT
  Age: 7 Year
  Sex: Female
  Weight: 27.2 kg

DRUGS (4)
  1. VYVANSE [Suspect]
     Indication: ATTENTION DEFICIT/HYPERACTIVITY DISORDER
     Dosage: 30 MG, 1X/DAY:QD, ORAL; 50 MG, 1X/DAY:QD, ORAL
     Route: 048
     Dates: start: 20080805, end: 20080904
  2. VYVANSE [Suspect]
     Indication: ATTENTION DEFICIT/HYPERACTIVITY DISORDER
     Dosage: 30 MG, 1X/DAY:QD, ORAL; 50 MG, 1X/DAY:QD, ORAL
     Route: 048
     Dates: start: 20080905
  3. DEPAKOTE [Concomitant]
  4. TENEX [Concomitant]

REACTIONS (5)
  - AGGRESSION [None]
  - DISTURBANCE IN ATTENTION [None]
  - DRUG INEFFECTIVE [None]
  - LOGORRHOEA [None]
  - PSYCHOMOTOR HYPERACTIVITY [None]
